FAERS Safety Report 6104388-5 (Version None)
Quarter: 2009Q1

REPORT INFORMATION
  Report Type: 
  Country: None (occurrence: None)
  Receive Date: 20090305
  Receipt Date: 20090223
  Transmission Date: 20090719
  Serious: Yes (Other)
  Sender: FDA-Public Use
  Company Number: JP-PFIZER INC-2009177411

PATIENT

DRUGS (5)
  1. ZOLOFT [Suspect]
     Indication: DEPRESSION
     Dosage: UNK
     Route: 048
     Dates: start: 20090110, end: 20090110
  2. DEPAS [Concomitant]
  3. MYSLEE [Concomitant]
  4. BROTIZOLAM [Concomitant]
  5. EVAMYL [Concomitant]

REACTIONS (2)
  - EYELID OEDEMA [None]
  - EYELID PTOSIS [None]
